FAERS Safety Report 5794259 (Version 3)
Quarter: 2019Q3

REPORT INFORMATION
  Report Type: Spontaneous
  Country: GB (occurrence: GB)
  Receive Date: 20050512
  Receipt Date: 20190717
  Transmission Date: 20191005
  Serious: Yes (Death)
  Sender: FDA-Public Use
  Company Number: GB-ROCHE-403821

PATIENT
  Age: 16 Year
  Sex: Male

DRUGS (1)
  1. ROACCUTANE [Suspect]
     Active Substance: ISOTRETINOIN
     Indication: ACNE
     Route: 048
     Dates: start: 20050405, end: 20050410

REACTIONS (3)
  - Dry throat [Unknown]
  - Completed suicide [Fatal]
  - Dry skin [Unknown]

NARRATIVE: CASE EVENT DATE: 20050422
